FAERS Safety Report 19889636 (Version 1)
Quarter: 2021Q3

REPORT INFORMATION
  Report Type: Spontaneous
  Country: CN (occurrence: CN)
  Receive Date: 20210927
  Receipt Date: 20210927
  Transmission Date: 20211014
  Serious: Yes (Hospitalization)
  Sender: FDA-Public Use
  Company Number: CN-GLAXOSMITHKLINE-CNCH2021APC066829

PATIENT
  Age: 55 Year
  Sex: Male

DRUGS (5)
  1. IBUPROFEN. [Suspect]
     Active Substance: IBUPROFEN
     Indication: PYREXIA
     Dosage: 1 DF AS REQUIRED (PRN)
     Route: 048
     Dates: start: 20210310, end: 20210311
  2. GANMAOLING GRANULES (HERBALS) [Suspect]
     Active Substance: HERBALS
     Indication: PYREXIA
     Dosage: 1 DF, TID
     Route: 048
     Dates: start: 20210308, end: 20210311
  3. IBUPROFEN SUSPENSION DROPS [Suspect]
     Active Substance: IBUPROFEN
     Indication: PYREXIA
     Dosage: 12 ML AS REQUIRED (PRN)
     Route: 048
     Dates: start: 20210308, end: 20210310
  4. LEVOFLOXACIN TABLET [Suspect]
     Active Substance: LEVOFLOXACIN
     Indication: PYREXIA
     Dosage: 0.5 G, QD
     Route: 048
     Dates: start: 20210310, end: 20210311
  5. AMOXICILLIN CAPSULE [Suspect]
     Active Substance: AMOXICILLIN
     Indication: PYREXIA
     Dosage: 2 DF, TID
     Route: 048
     Dates: start: 20210308, end: 20210310

REACTIONS (8)
  - Peripheral swelling [Recovered/Resolved]
  - Erythema [Recovering/Resolving]
  - Rash [Recovering/Resolving]
  - Flushing [Recovering/Resolving]
  - Drug eruption [Recovering/Resolving]
  - Pruritus [Recovered/Resolved]
  - Rash papular [Recovering/Resolving]
  - Rash erythematous [Recovering/Resolving]

NARRATIVE: CASE EVENT DATE: 20210311
